FAERS Safety Report 14815654 (Version 1)
Quarter: 2018Q2

REPORT INFORMATION
  Report Type: Spontaneous
  Country: DK (occurrence: DK)
  Receive Date: 20180426
  Receipt Date: 20180426
  Transmission Date: 20180711
  Serious: Yes (Other)
  Sender: FDA-Public Use
  Company Number: DK-BAUSCH-BL-2018-011322

PATIENT
  Sex: Male

DRUGS (7)
  1. INVOKANA [Concomitant]
     Active Substance: CANAGLIFLOZIN
     Indication: PRODUCT USED FOR UNKNOWN INDICATION
  2. ALDARA [Suspect]
     Active Substance: IMIQUIMOD
     Route: 065
     Dates: start: 20180317, end: 2018
  3. ALDARA [Suspect]
     Active Substance: IMIQUIMOD
     Indication: SUNBURN
     Route: 065
     Dates: start: 20180306, end: 201803
  4. ALDARA [Suspect]
     Active Substance: IMIQUIMOD
     Route: 065
     Dates: start: 20180315, end: 201803
  5. ALDARA [Suspect]
     Active Substance: IMIQUIMOD
     Route: 065
     Dates: start: 20180308, end: 201803
  6. ALDARA [Suspect]
     Active Substance: IMIQUIMOD
     Route: 065
     Dates: start: 20180310, end: 201803
  7. ALDARA [Suspect]
     Active Substance: IMIQUIMOD
     Route: 065
     Dates: start: 20180313, end: 201803

REACTIONS (6)
  - Oropharyngeal pain [Unknown]
  - Fatigue [Unknown]
  - Off label use [Recovered/Resolved]
  - Phimosis [Unknown]
  - Influenza like illness [Unknown]
  - Pyrexia [Unknown]

NARRATIVE: CASE EVENT DATE: 2018
